FAERS Safety Report 25483331 (Version 3)
Quarter: 2025Q4

REPORT INFORMATION
  Report Type: Spontaneous
  Country: US (occurrence: US)
  Receive Date: 20250626
  Receipt Date: 20251110
  Transmission Date: 20260118
  Serious: Yes (Hospitalization, Other)
  Sender: PFIZER
  Company Number: US-PFIZER INC-PV202500075670

PATIENT
  Age: 76 Year
  Sex: Female

DRUGS (6)
  1. IBRANCE [Suspect]
     Active Substance: PALBOCICLIB
     Indication: Breast cancer female
     Dosage: UNK
     Dates: start: 202505
  2. IBRANCE [Suspect]
     Active Substance: PALBOCICLIB
     Dosage: 100 MG
     Dates: start: 20250822
  3. IBRANCE [Suspect]
     Active Substance: PALBOCICLIB
     Dosage: 125 MG
  4. IBRANCE [Suspect]
     Active Substance: PALBOCICLIB
     Dosage: ONCE DAILY FOR 21 DAYS THEN 7 DAYS OFF IN COMBINATION WITH FULVESTRANT
     Dates: end: 20251027
  5. IBRANCE [Suspect]
     Active Substance: PALBOCICLIB
     Dosage: 75 MG
  6. FULVESTRANT [Suspect]
     Active Substance: FULVESTRANT
     Indication: Breast cancer female
     Dosage: UNK

REACTIONS (10)
  - Radiation injury [Unknown]
  - Feeding disorder [Recovered/Resolved]
  - Weight decreased [Unknown]
  - Diarrhoea [Unknown]
  - Fatigue [Unknown]
  - Taste disorder [Unknown]
  - Muscular weakness [Not Recovered/Not Resolved]
  - Peripheral swelling [Recovering/Resolving]
  - Alopecia [Unknown]
  - White blood cell count decreased [Recovering/Resolving]

NARRATIVE: CASE EVENT DATE: 20250623
